FAERS Safety Report 23198474 (Version 2)
Quarter: 2024Q1

REPORT INFORMATION
  Report Type: Spontaneous
  Country: US (occurrence: US)
  Receive Date: 20231117
  Receipt Date: 20240125
  Transmission Date: 20240410
  Serious: Yes (Hospitalization, Other)
  Sender: FDA-Public Use
  Company Number: US-PFIZER INC-PV202300186660

PATIENT
  Age: 61 Year
  Sex: Male
  Weight: 81.633 kg

DRUGS (4)
  1. INLYTA [Suspect]
     Active Substance: AXITINIB
     Indication: Renal cancer metastatic
     Dosage: 5 MG, 2X/DAY
     Dates: start: 20231016
  2. INLYTA [Suspect]
     Active Substance: AXITINIB
     Dosage: 5 MG, 2X/DAY
     Dates: start: 20231016
  3. KEYTRUDA [Suspect]
     Active Substance: PEMBROLIZUMAB
     Indication: Neoplasm malignant
     Dosage: UNK
     Route: 042
     Dates: start: 20230706
  4. ZOCOR [Concomitant]
     Active Substance: SIMVASTATIN
     Indication: Blood cholesterol abnormal
     Dosage: 40 MG, 1X/DAY
     Dates: start: 1995

REACTIONS (7)
  - Hepatic enzyme increased [Recovered/Resolved]
  - Diabetes mellitus [Unknown]
  - Blood pressure increased [Unknown]
  - Oral pain [Unknown]
  - Glossodynia [Unknown]
  - Dysphonia [Unknown]
  - Nail discolouration [Unknown]

NARRATIVE: CASE EVENT DATE: 20231121
